FAERS Safety Report 6370779-0 (Version None)
Quarter: 2009Q3

REPORT INFORMATION
  Report Type: 
  Country: None (occurrence: None)
  Receive Date: 20090923
  Receipt Date: 20070913
  Transmission Date: 20100115
  Serious: Yes (Other)
  Sender: FDA-Public Use
  Company Number: US-ASTRAZENECA-2006UW24665

PATIENT
  Age: 16977 Day
  Sex: Male
  Weight: 91.6 kg

DRUGS (23)
  1. SEROQUEL [Suspect]
     Indication: SCHIZOPHRENIA, PARANOID TYPE
     Dosage: 25 - 800 MG
     Route: 048
     Dates: start: 20021120
  2. ABILIFY [Concomitant]
  3. CLOZARIL [Concomitant]
  4. RISPERDAL [Concomitant]
  5. STELAZINE [Concomitant]
  6. ZYPREXA [Concomitant]
  7. PREDNISONE [Concomitant]
  8. PROVIGIL [Concomitant]
  9. CYMBALTA [Concomitant]
  10. STRATTERA [Concomitant]
  11. ATENOLOL [Concomitant]
  12. ZOLOFT [Concomitant]
  13. NEURONTIN [Concomitant]
  14. SYNTHROID [Concomitant]
  15. IMURAN [Concomitant]
  16. ACIPHEX [Concomitant]
  17. NABUMETONE [Concomitant]
  18. ZOCOR [Concomitant]
  19. WELLBUTRIN [Concomitant]
  20. PAXIL [Concomitant]
  21. OMEPRAZOLE [Concomitant]
  22. GEODON [Concomitant]
  23. METFORMIN HCL [Concomitant]

REACTIONS (15)
  - ABDOMINAL PAIN UPPER [None]
  - BRADYKINESIA [None]
  - CELLULITIS [None]
  - CHEST PAIN [None]
  - CONFUSIONAL STATE [None]
  - DEHYDRATION [None]
  - DEMYELINATING POLYNEUROPATHY [None]
  - DIABETES MELLITUS [None]
  - DYSARTHRIA [None]
  - GASTROENTERITIS VIRAL [None]
  - HYPERKERATOSIS [None]
  - HYPERSOMNIA [None]
  - JOINT SPRAIN [None]
  - ROAD TRAFFIC ACCIDENT [None]
  - TARDIVE DYSKINESIA [None]
